FAERS Safety Report 5487185-3 (Version None)
Quarter: 2007Q4

REPORT INFORMATION
  Report Type: 
  Country: None (occurrence: None)
  Receive Date: 20071016
  Receipt Date: 20071001
  Transmission Date: 20080405
  Serious: Yes (Death, Life-Threatening)
  Sender: FDA-Public Use
  Company Number: US-GENENTECH-249448

PATIENT
  Sex: Male

DRUGS (5)
  1. BEVACIZUMAB [Suspect]
     Indication: NON-SMALL CELL LUNG CANCER
     Dosage: 15 MG/KG, Q3W
     Route: 042
     Dates: start: 20070613, end: 20070828
  2. CETUXIMAB [Suspect]
     Indication: NON-SMALL CELL LUNG CANCER
     Dosage: 250 MG/M2, 1/WEEK
     Route: 042
     Dates: start: 20070613, end: 20070828
  3. CETUXIMAB [Suspect]
     Dosage: 400 MG/M2, UNK
  4. TAXOL [Suspect]
     Indication: NON-SMALL CELL LUNG CANCER
     Dosage: 200 MG/M2, Q3W
     Route: 042
     Dates: start: 20070613, end: 20070828
  5. CARBOPLATIN [Suspect]
     Indication: NON-SMALL CELL LUNG CANCER
     Dosage: 6 AUC, Q3W
     Route: 042
     Dates: start: 20070613, end: 20070828

REACTIONS (2)
  - SUDDEN DEATH [None]
  - THROMBOSIS [None]
